FAERS Safety Report 6858569-3 (Version None)
Quarter: 2010Q3

REPORT INFORMATION
  Report Type: 
  Country: None (occurrence: None)
  Receive Date: 20100719
  Receipt Date: 20080212
  Transmission Date: 20110219
  Serious: No
  Sender: FDA-Public Use
  Company Number: US-PFIZER INC-2008013732

PATIENT
  Sex: Female
  Weight: 82.7 kg

DRUGS (7)
  1. CHANTIX [Suspect]
     Indication: SMOKING CESSATION THERAPY
     Route: 048
  2. PLAVIX [Concomitant]
  3. ACEON [Concomitant]
  4. HYDROCHLOROTHIAZIDE [Concomitant]
  5. VYTORIN [Concomitant]
  6. METFORMIN HCL [Concomitant]
  7. METOPROLOL [Concomitant]

REACTIONS (1)
  - NAUSEA [None]
